FAERS Safety Report 17429136 (Version 1)
Quarter: 2020Q1

REPORT INFORMATION
  Report Type: Spontaneous
  Country: US (occurrence: US)
  Receive Date: 20200131
  Receipt Date: 20200131
  Transmission Date: 20200409
  Serious: Yes (Death, Life-Threatening, Hospitalization, Other)
  Sender: FDA-Public Use
  Company Number: None

PATIENT
  Age: 58 Year
  Sex: Male
  Weight: 165.38 kg

DRUGS (1)
  1. FARXIGA [Suspect]
     Active Substance: DAPAGLIFLOZIN PROPANEDIOL
     Indication: TYPE 2 DIABETES MELLITUS
     Route: 048
     Dates: start: 20150928, end: 20170816

REACTIONS (4)
  - Cardiac arrest [None]
  - Septic shock [None]
  - Multiple organ dysfunction syndrome [None]
  - Fournier^s gangrene [None]

NARRATIVE: CASE EVENT DATE: 20170816
